FAERS Safety Report 14974609 (Version 1)
Quarter: 2018Q2

REPORT INFORMATION
  Report Type: Spontaneous
  Country: US (occurrence: US)
  Receive Date: 20180516
  Receipt Date: 20180516
  Transmission Date: 20180711
  Serious: No
  Sender: FDA-Public Use
  Company Number: None

PATIENT
  Sex: Female

DRUGS (2)
  1. SUMATRIPTAN. [Suspect]
     Active Substance: SUMATRIPTAN
  2. NARATRIPTAN [Suspect]
     Active Substance: NARATRIPTAN HYDROCHLORIDE

REACTIONS (3)
  - Nausea [None]
  - Diarrhoea [None]
  - Vomiting [None]
